FAERS Safety Report 9384813 (Version 1)
Quarter: 2013Q3

REPORT INFORMATION
  Report Type: Spontaneous
  Country: US (occurrence: US)
  Receive Date: 20130705
  Receipt Date: 20130705
  Transmission Date: 20140515
  Serious: No
  Sender: FDA-Public Use
  Company Number: US-PFIZER INC-2013197245

PATIENT
  Age: 57 Year
  Sex: Male
  Weight: 74 kg

DRUGS (2)
  1. VIAGRA [Suspect]
     Indication: ERECTILE DYSFUNCTION
     Dosage: UNK
     Dates: start: 201306, end: 201306
  2. VIAGRA [Suspect]
     Dosage: 4 DF, UNK
     Dates: start: 201306, end: 201306

REACTIONS (2)
  - Overdose [Unknown]
  - Drug ineffective [Unknown]
